FAERS Safety Report 4370166-0 (Version None)
Quarter: 2004Q2

REPORT INFORMATION
  Report Type: 
  Country: None (occurrence: None)
  Receive Date: 20040603
  Receipt Date: 20040428
  Transmission Date: 20050107
  Serious: No
  Sender: FDA-Public Use
  Company Number: US-BRISTOL-MYERS SQUIBB COMPANY-12573945

PATIENT
  Age: 47 Year
  Sex: Female

DRUGS (3)
  1. ABILIFY [Suspect]
     Indication: SCHIZOAFFECTIVE DISORDER
     Dosage: INC TO 30 MG/DAY; INC TO 40 MG/DAY; DEC TO 30 MG/DAY
     Route: 048
     Dates: start: 20030101
  2. EFFEXOR [Concomitant]
  3. VALIUM [Concomitant]

REACTIONS (5)
  - DEPRESSION [None]
  - HALLUCINATION, AUDITORY [None]
  - INSOMNIA [None]
  - OCULAR HYPERTENSION [None]
  - PRESCRIBED OVERDOSE [None]
